FAERS Safety Report 4504473-5 (Version None)
Quarter: 2004Q4

REPORT INFORMATION
  Report Type: 
  Country: None (occurrence: None)
  Receive Date: 20041117
  Receipt Date: 20041117
  Transmission Date: 20050328
  Serious: Yes (Hospitalization)
  Sender: FDA-Public Use
  Company Number: None

PATIENT
  Age: 83 Year
  Sex: Male
  Weight: 79.6 kg

DRUGS (12)
  1. CEFTRIAXONE SODIUM [Suspect]
     Dosage: 1 GM, Q24H, IV PIGGY
     Route: 042
     Dates: start: 20040622, end: 20040623
  2. AZITHROMYCIN (ZITHROMAX) TAB [Concomitant]
  3. CITALOPRAM HYDROBROMIDE TAB [Concomitant]
  4. IRON POLYSACCHARIDE (NIFEREX) [Concomitant]
  5. RISPERIDONE [Concomitant]
  6. ALBUTEROL SOLN, INHL [Concomitant]
  7. OMEPRAZOLE (PRILOSEC FOR INPATIENT USE) CAP, SA [Concomitant]
  8. IPRATROPIUM (ATROVENT) SOLN, INHL [Concomitant]
  9. LOVASTATIN TAB [Concomitant]
  10. FELODIPINE [Concomitant]
  11. METOPROLOL TARTRATE TAB [Concomitant]
  12. FINASTERIDE TAB [Concomitant]

REACTIONS (4)
  - BACK PAIN [None]
  - DYSPNOEA [None]
  - PRURITUS [None]
  - TACHYPNOEA [None]
